FAERS Safety Report 19591504 (Version 1)
Quarter: 2021Q3

REPORT INFORMATION
  Report Type: Spontaneous
  Country: GB (occurrence: GB)
  Receive Date: 20210722
  Receipt Date: 20210722
  Transmission Date: 20211014
  Serious: No
  Sender: FDA-Public Use
  Company Number: GB-LUPIN PHARMACEUTICALS INC.-2021-12339

PATIENT
  Age: 32 Year
  Sex: Female

DRUGS (9)
  1. POTASSIUM [Suspect]
     Active Substance: POTASSIUM
     Dosage: 2 DOSAGE FORM, QID (SLOW SODIUM TABLETS)
     Route: 048
  2. AMILORIDE [Suspect]
     Active Substance: AMILORIDE
     Dosage: 10 MILLIGRAM, QD
     Route: 065
  3. AMILORIDE [Suspect]
     Active Substance: AMILORIDE
     Indication: GITELMAN^S SYNDROME
     Dosage: 2.5 MILLIGRAM, QD
     Route: 065
  4. POTASSIUM [Suspect]
     Active Substance: POTASSIUM
     Dosage: 2 DOSAGE FORM, TID (SANDO? K TABLET)
     Route: 048
  5. POTASSIUM [Suspect]
     Active Substance: POTASSIUM
     Indication: GITELMAN^S SYNDROME
     Dosage: 40 MILLIMOLE
     Route: 042
  6. EPLERENONE. [Suspect]
     Active Substance: EPLERENONE
     Indication: GITELMAN^S SYNDROME
     Dosage: 25 MILLIGRAM, QD
     Route: 065
  7. AMILORIDE [Suspect]
     Active Substance: AMILORIDE
     Dosage: 5 MILLIGRAM, QD
     Route: 065
  8. SODIUM [Suspect]
     Active Substance: SODIUM
     Dosage: 2 DOSAGE FORM, QID (SLOW SODIUM TABLETS)
     Route: 048
  9. SODIUM [Suspect]
     Active Substance: SODIUM
     Indication: GITELMAN^S SYNDROME
     Dosage: 2 DOSAGE FORM, TID (SLOW SODIUM TABLETS)
     Route: 048

REACTIONS (2)
  - Exposure during pregnancy [Unknown]
  - Live birth [Unknown]
